FAERS Safety Report 4653029-2 (Version None)
Quarter: 2005Q2

REPORT INFORMATION
  Report Type: 
  Country: None (occurrence: None)
  Receive Date: 20050505
  Receipt Date: 20050426
  Transmission Date: 20051028
  Serious: Yes (Disabling)
  Sender: FDA-Public Use
  Company Number: US-ABBOTT-05P-163-0298534-00

PATIENT
  Sex: Female

DRUGS (4)
  1. VALPROIC ACID [Suspect]
     Indication: CONVULSION
     Dosage: TAPERING DOSE
     Dates: start: 19800101
  2. AMIODARONE HYDROCHLORIDE [Suspect]
     Indication: VENTRICULAR TACHYCARDIA
     Route: 048
     Dates: start: 20041123, end: 20041229
  3. THYROID TAB [Suspect]
     Indication: THYROID DISORDER
  4. TOPIRAMATE [Concomitant]
     Indication: DRUG USE FOR UNKNOWN INDICATION

REACTIONS (6)
  - GAIT DISTURBANCE [None]
  - PERIPHERAL COLDNESS [None]
  - SPEECH DISORDER [None]
  - THYROID DISORDER [None]
  - TREMOR [None]
  - VENTRICULAR TACHYCARDIA [None]
